FAERS Safety Report 11004179 (Version 1)
Quarter: 2015Q2

REPORT INFORMATION
  Report Type: Spontaneous
  Country: GB (occurrence: None)
  Receive Date: 20150407
  Receipt Date: 20150407
  Transmission Date: 20150821
  Serious: Yes (Other)
  Sender: FDA-Public Use
  Company Number: CL-622-2015

PATIENT
  Age: 55 Year
  Sex: Male
  Weight: 80.6 kg

DRUGS (5)
  1. ONDANSETRON INTRAVENOUS UNK [Suspect]
     Active Substance: ONDANSETRON
     Indication: PROPHYLAXIS OF NAUSEA AND VOMITING
     Route: 042
     Dates: start: 20150205, end: 20150205
  2. DEXAMETHASONE. [Concomitant]
     Active Substance: DEXAMETHASONE
  3. TRANEXAMIC ACID. [Concomitant]
     Active Substance: TRANEXAMIC ACID
  4. PROPOFOL. [Concomitant]
     Active Substance: PROPOFOL
  5. EPHIDRINE [Concomitant]

REACTIONS (2)
  - Locked-in syndrome [None]
  - Hyporesponsive to stimuli [None]

NARRATIVE: CASE EVENT DATE: 20150205
